FAERS Safety Report 7987579-8 (Version None)
Quarter: 2011Q4

REPORT INFORMATION
  Report Type: 
  Country: None (occurrence: None)
  Receive Date: 20111216
  Receipt Date: 20110418
  Transmission Date: 20120403
  Serious: No
  Sender: FDA-Public Use
  Company Number: US-BRISTOL-MYERS SQUIBB COMPANY-15680564

PATIENT
  Age: 51 Year
  Sex: Female

DRUGS (5)
  1. BENZTROPINE MESYLATE [Concomitant]
  2. ZOLOFT [Concomitant]
  3. FLEXERIL [Concomitant]
  4. ABILIFY [Suspect]
     Dosage: DURATION :FEW YEARS
     Dates: end: 20110101
  5. VICODIN [Concomitant]

REACTIONS (1)
  - DYSKINESIA [None]
